FAERS Safety Report 20874222 (Version 1)
Quarter: 2022Q2

REPORT INFORMATION
  Report Type: Spontaneous
  Country: US (occurrence: None)
  Receive Date: 20220525
  Receipt Date: 20220525
  Transmission Date: 20220721
  Serious: Yes (Hospitalization)
  Sender: FDA-Public Use
  Company Number: None

PATIENT
  Age: 68 Year
  Sex: Female

DRUGS (3)
  1. SODIUM CHLORIDE INHALATION SOLUTION [Suspect]
     Active Substance: SODIUM CHLORIDE
     Indication: Infective pulmonary exacerbation of cystic fibrosis
     Dosage: INHALE 4 ML VIA NEBULIZER  TWO TIMES DAILY.?
     Route: 055
     Dates: start: 20200728
  2. ALBUTEROL SULFATE\IPRATROPIUM BROMIDE [Suspect]
     Active Substance: ALBUTEROL SULFATE\IPRATROPIUM BROMIDE
     Indication: Cystic fibrosis
     Dosage: FREQUENCY : TWICE A DAY;?#2 INHIAL.E 3 ML. EVEHY SIX HOURLS.?
     Route: 055
     Dates: start: 20191123
  3. ALBUTEROL SULFATE\IPRATROPIUM BROMIDE [Suspect]
     Active Substance: ALBUTEROL SULFATE\IPRATROPIUM BROMIDE
     Dosage: FREQUENCY : EVERY 6 HOURS;?
     Route: 055

REACTIONS (4)
  - Cystic fibrosis [None]
  - Fall [None]
  - Head injury [None]
  - Concussion [None]

NARRATIVE: CASE EVENT DATE: 20220520
